FAERS Safety Report 16856327 (Version 1)
Quarter: 2019Q3

REPORT INFORMATION
  Report Type: Spontaneous
  Country: US (occurrence: US)
  Receive Date: 20190926
  Receipt Date: 20190926
  Transmission Date: 20191005
  Serious: Yes (Hospitalization, Other)
  Sender: FDA-Public Use
  Company Number: US-PFIZER INC-2019400497

PATIENT
  Age: 67 Year
  Sex: Female

DRUGS (2)
  1. DACARBAZINE. [Concomitant]
     Active Substance: DACARBAZINE
     Dosage: 250 MG/M2, DAILY FOR 5 DAYS
  2. ADRIAMYCIN [Suspect]
     Active Substance: DOXORUBICIN HYDROCHLORIDE
     Dosage: 70 MG/M2, UNK
     Route: 041

REACTIONS (10)
  - Sinus tachycardia [Unknown]
  - Pain in extremity [Unknown]
  - Hip fracture [Unknown]
  - Cardiomegaly [Unknown]
  - Haemoptysis [Unknown]
  - Dyspnoea [Unknown]
  - Atrial fibrillation [Unknown]
  - Hyperventilation [Unknown]
  - Ventricular extrasystoles [Unknown]
  - Left ventricular hypertrophy [Unknown]
